FAERS Safety Report 5521830-9 (Version None)
Quarter: 2007Q4

REPORT INFORMATION
  Report Type: 
  Country: None (occurrence: None)
  Receive Date: 20071120
  Receipt Date: 20071108
  Transmission Date: 20080405
  Serious: Yes (Other)
  Sender: FDA-Public Use
  Company Number: BR-GENENTECH-251223

PATIENT
  Age: 43 Year
  Sex: Female

DRUGS (4)
  1. AVASTIN [Suspect]
     Indication: COLORECTAL CANCER
     Dosage: 25 MG/ML, UNK
     Route: 042
     Dates: start: 20070915
  2. FOLINIC ACID [Concomitant]
     Indication: COLORECTAL CANCER
     Dosage: UNK, UNK
     Dates: start: 20070915
  3. FLUOROURACIL [Concomitant]
     Indication: COLORECTAL CANCER
     Dosage: UNK, UNK
     Dates: start: 20070615
  4. IRINOTECAN HCL [Concomitant]
     Indication: COLORECTAL CANCER
     Dosage: UNK, UNK
     Dates: start: 20070915

REACTIONS (4)
  - ANAEMIA [None]
  - ASTHENIA [None]
  - GINGIVITIS ULCERATIVE [None]
  - MUCOSAL INFLAMMATION [None]
